FAERS Safety Report 23159947 (Version 4)
Quarter: 2025Q2

REPORT INFORMATION
  Report Type: Report from Study
  Country: CA (occurrence: CA)
  Receive Date: 20231108
  Receipt Date: 20250613
  Transmission Date: 20250717
  Serious: Yes (Other)
  Sender: TAKEDA
  Company Number: CA-TAKEDA-2023TUS000257

PATIENT
  Age: 39 Year
  Sex: Male
  Weight: 61 kg

DRUGS (5)
  1. HUMAN IMMUNOGLOBULIN G [Suspect]
     Active Substance: HUMAN IMMUNOGLOBULIN G
     Indication: Primary immunodeficiency syndrome
     Dosage: 9 GRAM, 1/WEEK
     Dates: start: 20190121
  2. HUMAN IMMUNOGLOBULIN G [Suspect]
     Active Substance: HUMAN IMMUNOGLOBULIN G
     Indication: Immunodeficiency common variable
     Dosage: 9 GRAM, 1/WEEK
  3. HUMAN IMMUNOGLOBULIN G [Suspect]
     Active Substance: HUMAN IMMUNOGLOBULIN G
     Indication: Combined immunodeficiency
     Dosage: 9 GRAM, 1/WEEK
  4. HUMAN IMMUNOGLOBULIN G [Suspect]
     Active Substance: HUMAN IMMUNOGLOBULIN G
     Indication: Bacterial infection
     Dosage: 12 GRAM, 1/WEEK
  5. MOMETASONE [Concomitant]
     Active Substance: MOMETASONE
     Indication: Nasal congestion

REACTIONS (18)
  - Lower respiratory tract infection [Unknown]
  - Pneumonia [Unknown]
  - Herpes zoster [Unknown]
  - Vein disorder [Unknown]
  - Malabsorption [Unknown]
  - Blood immunoglobulin G decreased [Unknown]
  - Product prescribing issue [Unknown]
  - Mental disorder [Unknown]
  - Upper-airway cough syndrome [Not Recovered/Not Resolved]
  - Varicella zoster virus infection [Recovering/Resolving]
  - Oral pruritus [Unknown]
  - Upper respiratory tract infection [Not Recovered/Not Resolved]
  - Sinusitis [Unknown]
  - Rash maculo-papular [Recovered/Resolved]
  - Hyperhidrosis [Unknown]
  - Vomiting [Recovering/Resolving]
  - Nausea [Recovering/Resolving]
  - Fatigue [Recovering/Resolving]

NARRATIVE: CASE EVENT DATE: 20220901
